FAERS Safety Report 6496363-6 (Version None)
Quarter: 2009Q4

REPORT INFORMATION
  Report Type: 
  Country: None (occurrence: None)
  Receive Date: 20091214
  Receipt Date: 20091208
  Transmission Date: 20100525
  Serious: Yes (Other)
  Sender: FDA-Public Use
  Company Number: BR-B.I. PHARMACEUTICALS,INC./RIDGEFIELD-2009-BR-01221BR

PATIENT
  Age: 85 Year
  Sex: Male

DRUGS (3)
  1. ATENSINA [Suspect]
     Indication: HYPERTENSION
     Dosage: 0.1 MG
     Route: 048
  2. PRANDIN [Concomitant]
     Indication: DIABETES MELLITUS
  3. TEGRETOL [Concomitant]
     Indication: FACIAL NERVE DISORDER

REACTIONS (1)
  - BLOOD PRESSURE INCREASED [None]
